FAERS Safety Report 8235337-1 (Version None)
Quarter: 2012Q1

REPORT INFORMATION
  Report Type: 
  Country: None (occurrence: None)
  Receive Date: 20120326
  Receipt Date: 20120314
  Transmission Date: 20120608
  Serious: Yes (Hospitalization, Other)
  Sender: FDA-Public Use
  Company Number: US-ELI_LILLY_AND_COMPANY-US201203004364

PATIENT
  Sex: Male

DRUGS (3)
  1. HUMULIN R [Suspect]
     Indication: DIABETES MELLITUS
     Dosage: UNK, UNKNOWN
     Dates: start: 20091001, end: 20100101
  2. HUMALOG [Suspect]
     Indication: DIABETES MELLITUS
     Dosage: 8 U, TID
     Dates: start: 20100114
  3. LANTUS [Concomitant]
     Dosage: UNK

REACTIONS (2)
  - PULMONARY FIBROSIS [None]
  - INCORRECT DOSE ADMINISTERED [None]
